FAERS Safety Report 6338363-2 (Version None)
Quarter: 2009Q3

REPORT INFORMATION
  Report Type: 
  Country: None (occurrence: None)
  Receive Date: 20090901
  Receipt Date: 20090824
  Transmission Date: 20100115
  Serious: Yes (Death, Hospitalization)
  Sender: FDA-Public Use
  Company Number: US022061

PATIENT
  Age: 66 Year
  Sex: Male
  Weight: 68 kg

DRUGS (6)
  1. TRISENOX [Suspect]
     Indication: MYELODYSPLASTIC SYNDROME
     Dosage: 16.9 MG (16.9 MG, 1 IN 1 D), INTRAVENOUS
     Route: 042
     Dates: start: 20071217, end: 20071221
  2. DECITABINE (DECITABINE) [Suspect]
     Indication: MYELODYSPLASTIC SYNDROME
     Dosage: 36 MG (36 MG, 1 IN 1 D), INTRAVENOUS
     Route: 042
     Dates: start: 20071217, end: 20071221
  3. ASCORIC ACID (ASCORBIC ACID) [Concomitant]
  4. EXJADE [Concomitant]
  5. MIRALAX [Concomitant]
  6. FOLIC ACID [Concomitant]

REACTIONS (5)
  - FEBRILE NEUTROPENIA [None]
  - GENERAL PHYSICAL HEALTH DETERIORATION [None]
  - PLEURAL EFFUSION [None]
  - SUBDURAL HAEMATOMA [None]
  - THROMBOCYTOPENIA [None]
